FAERS Safety Report 9029850 (Version 1)
Quarter: 2013Q1

REPORT INFORMATION
  Report Type: Other
  Country: GB (occurrence: GB)
  Receive Date: 20130124
  Receipt Date: 20130124
  Transmission Date: 20140127
  Serious: Yes (Death)
  Sender: FDA-Public Use
  Company Number: GB-WATSON-2013-01014

PATIENT
  Age: 48 Year
  Sex: Male

DRUGS (5)
  1. FLUOXETINE HYDROCHLORIDE (UNKNOWN) [Suspect]
     Indication: ANXIETY
     Dosage: 60 MG, DAILY
     Route: 048
  2. ZAPONEX [Suspect]
     Indication: PRODUCT USED FOR UNKNOWN INDICATION
     Dosage: 400 MG, DAILY
     Route: 048
     Dates: start: 20081124, end: 20120924
  3. SULPIRIDE [Concomitant]
     Indication: PSYCHOTIC DISORDER
     Dosage: 600 MG, DAILY
     Route: 048
     Dates: start: 2005
  4. FLUOXETINE [Concomitant]
     Indication: DEPRESSION
     Dosage: 60 MG, DAILY
     Route: 065
  5. PREGABALIN [Concomitant]
     Indication: ANXIETY
     Dosage: 100 MG, BID
     Route: 048
     Dates: start: 201007

REACTIONS (3)
  - Myocardial infarction [Fatal]
  - Cardiac failure [Fatal]
  - Ventricular hypertrophy [Fatal]
